FAERS Safety Report 9098873 (Version 2)
Quarter: 2013Q2

REPORT INFORMATION
  Report Type: Report from Study
  Country: GB (occurrence: GB)
  Receive Date: 20130213
  Receipt Date: 20130614
  Transmission Date: 20140414
  Serious: Yes (Other)
  Sender: FDA-Public Use
  Company Number: PHHY2013GB013183

PATIENT
  Age: 52 Year
  Sex: Female

DRUGS (8)
  1. RIBAVIRIN [Suspect]
     Indication: HEPATITIS C
     Dosage: UNK UKN, UNK, BID
     Route: 048
     Dates: start: 20121001
  2. MIRTAZAPINE [Suspect]
     Route: 065
  3. PEGINTERFERON ALFA-2B [Suspect]
     Indication: CHRONIC MYELOID LEUKAEMIA
     Dosage: UNK UKN, UNK, QW
     Route: 058
     Dates: start: 20121001
  4. PEGINTERFERON ALFA-2B [Suspect]
     Indication: HEPATITIS C
  5. INCIVO [Suspect]
     Indication: HEPATITIS C
     Dosage: 750 MG, TID
     Route: 048
     Dates: start: 20121001
  6. EMTRICITABINE [Concomitant]
     Indication: ANTIVIRAL PROPHYLAXIS
  7. RILPIVIRINE [Concomitant]
     Indication: HIV INFECTION
  8. TENOFOVIR DISOPROXIL FUMARATE [Concomitant]
     Indication: HIV INFECTION

REACTIONS (12)
  - Confusional state [Recovering/Resolving]
  - Haemoglobin decreased [Not Recovered/Not Resolved]
  - Skin disorder [Not Recovered/Not Resolved]
  - Off label use [Not Recovered/Not Resolved]
  - Musculoskeletal pain [Not Recovered/Not Resolved]
  - Insomnia [Not Recovered/Not Resolved]
  - Fatigue [Not Recovered/Not Resolved]
  - Hallucination [Recovering/Resolving]
  - Depressed mood [Not Recovered/Not Resolved]
  - Disorientation [Recovering/Resolving]
  - Abnormal dreams [Recovering/Resolving]
  - Vomiting [Recovering/Resolving]
